FAERS Safety Report 4267510-1 (Version None)
Quarter: 2004Q1

REPORT INFORMATION
  Report Type: 
  Country: None (occurrence: None)
  Receive Date: 20040109
  Receipt Date: 20030707
  Transmission Date: 20041129
  Serious: No
  Sender: FDA-Public Use
  Company Number: US-GLAXOSMITHKLINE-A0415804A

PATIENT
  Age: 64 Year
  Sex: Female

DRUGS (3)
  1. WELLBUTRIN [Suspect]
     Indication: ANXIETY
     Dosage: 100MG THREE TIMES PER DAY
     Route: 048
  2. EXTRA STRENGTH TYLENOL [Suspect]
     Indication: ILL-DEFINED DISORDER
     Dosage: 500MG TWICE PER DAY
     Route: 048
  3. ARTHRITIS/TYLENOL [Suspect]
     Indication: ILL-DEFINED DISORDER
     Dosage: 650MG TWICE PER DAY
     Route: 048

REACTIONS (4)
  - BLOOD CREATINE ABNORMAL [None]
  - BLOOD UREA [None]
  - HYPOKALAEMIA [None]
  - RENAL INJURY [None]
